FAERS Safety Report 23091969 (Version 2)
Quarter: 2023Q4

REPORT INFORMATION
  Report Type: Report from Study
  Country: GB (occurrence: GB)
  Receive Date: 20231021
  Receipt Date: 20231115
  Transmission Date: 20240110
  Serious: Yes (Death, Other)
  Sender: FDA-Public Use
  Company Number: GB-CELLTRION INC.-2023GB017764

PATIENT

DRUGS (10)
  1. BEVACIZUMAB [Suspect]
     Active Substance: BEVACIZUMAB
     Indication: Hepatocellular carcinoma
     Dosage: 1300 MG
     Route: 065
     Dates: start: 20220329
  2. ATEZOLIZUMAB [Suspect]
     Active Substance: ATEZOLIZUMAB
     Indication: Hepatocellular carcinoma
     Dosage: 1200 MG, EVERY 3 WEEK
     Route: 041
     Dates: start: 20220329
  3. AMLODIPINE [Concomitant]
     Active Substance: AMLODIPINE BESYLATE
     Dosage: EVERY 1 DAY
     Dates: start: 20210321
  4. AMOXICILLIN [Concomitant]
     Active Substance: AMOXICILLIN
     Dosage: EVERY 0.33 DAY
     Dates: start: 20230824, end: 20230831
  5. ATORVASTATIN [Concomitant]
     Active Substance: ATORVASTATIN
     Dosage: EVERY 1 DAY
     Dates: start: 20120321
  6. CARVEDILOL [Concomitant]
     Active Substance: CARVEDILOL
     Dosage: EVERY 1 DAY
  7. AMOXICILLIN\CLAVULANATE POTASSIUM [Concomitant]
     Active Substance: AMOXICILLIN\CLAVULANATE POTASSIUM
     Dosage: EVERY 0.33 DAY
     Dates: start: 20230725, end: 20230730
  8. DOXAZOSIN [Concomitant]
     Active Substance: DOXAZOSIN MESYLATE
     Dosage: EVERY 0.5 DAY
     Dates: start: 2012
  9. IRBESARTAN [Concomitant]
     Active Substance: IRBESARTAN
     Dosage: EVERY 1 DAY
     Dates: start: 20120321
  10. NITROFURANTOIN [Concomitant]
     Active Substance: NITROFURANTOIN
     Dosage: EVERY 0.5 DAY
     Dates: start: 20230811, end: 20230817

REACTIONS (4)
  - Death [Fatal]
  - Decreased appetite [Recovered/Resolved]
  - Taste disorder [Not Recovered/Not Resolved]
  - Intentional product use issue [Unknown]

NARRATIVE: CASE EVENT DATE: 20230601
